FAERS Safety Report 13963900 (Version 1)
Quarter: 2017Q3

REPORT INFORMATION
  Report Type: Spontaneous
  Country: CH (occurrence: CH)
  Receive Date: 20170913
  Receipt Date: 20170913
  Transmission Date: 20171128
  Serious: Yes (Hospitalization)
  Sender: FDA-Public Use
  Company Number: CH-ASTRAZENECA-2017SE91035

PATIENT
  Age: 27106 Day
  Sex: Male
  Weight: 78.1 kg

DRUGS (8)
  1. ATACAND PLUS [Suspect]
     Active Substance: CANDESARTAN CILEXETIL\HYDROCHLOROTHIAZIDE
     Dosage: 16/12.5, 1 DF, DAILY
     Route: 048
     Dates: end: 201702
  2. ASPIRIN. [Suspect]
     Active Substance: ASPIRIN
     Indication: HEADACHE
     Dosage: ASPIRIN CARDIO, 100 MG, UNKNOWN
     Route: 048
  3. ASPIRIN. [Suspect]
     Active Substance: ASPIRIN
     Indication: HEADACHE
     Route: 048
     Dates: start: 201702, end: 20170225
  4. JANUMET [Suspect]
     Active Substance: METFORMIN HYDROCHLORIDE\SITAGLIPTIN PHOSPHATE
     Indication: TYPE 2 DIABETES MELLITUS
     Dosage: 1000/50 MG (MERCK SHARP AND DOHME)
     Route: 065
     Dates: end: 201702
  5. ATORVASTATIN [Concomitant]
     Active Substance: ATORVASTATIN
     Dosage: (PFIZER), 40MMOL, EVERY DAY
     Route: 048
     Dates: end: 201702
  6. BILOL [Concomitant]
     Active Substance: BISOPROLOL
     Dosage: (SANDOZ PHARMACEUTICALS), 2.5 MG EVERY DAY
     Route: 048
  7. MAGNESIUM DIASPORAL [Concomitant]
     Active Substance: MAGNESIUM
     Dosage: (DOETSCH GRETHER), 300MG EVERY DAY
     Route: 065
  8. PANTOZOL [Concomitant]
     Active Substance: PANTOPRAZOLE SODIUM
     Dosage: (ALTANA PHARMA AG), 40MG, EVERY DAY
     Route: 065

REACTIONS (1)
  - Acute kidney injury [Recovering/Resolving]

NARRATIVE: CASE EVENT DATE: 20170225
